FAERS Safety Report 7738187-5 (Version None)
Quarter: 2011Q3

REPORT INFORMATION
  Report Type: 
  Country: None (occurrence: None)
  Receive Date: 20110908
  Receipt Date: 20110907
  Transmission Date: 20111222
  Serious: Yes (Other)
  Sender: FDA-Public Use
  Company Number: NL-PFIZER INC-2011210323

PATIENT
  Age: 40 Year
  Sex: Female

DRUGS (5)
  1. XYZAL [Suspect]
     Dosage: 5MG, DAILY
  2. CARBAMAZEPINE [Suspect]
  3. DEPAKENE [Suspect]
     Dosage: 1200MG, DAILY
  4. ZOLOFT [Suspect]
     Dosage: 100MG, DAILY
  5. SEROQUEL [Suspect]
     Dosage: 100MG, DAILY

REACTIONS (12)
  - HEADACHE [None]
  - INFERTILITY FEMALE [None]
  - NAUSEA [None]
  - OVARIAN CYST [None]
  - VITAMIN D DEFICIENCY [None]
  - ABDOMINAL DISCOMFORT [None]
  - SUICIDE ATTEMPT [None]
  - PREGNANCY [None]
  - MATERNAL EXPOSURE DURING PREGNANCY [None]
  - PERNICIOUS ANAEMIA [None]
  - VITAMIN B12 DEFICIENCY [None]
  - DIARRHOEA [None]
